FAERS Safety Report 13652988 (Version 1)
Quarter: 2017Q2

REPORT INFORMATION
  Report Type: Spontaneous
  Country: US (occurrence: US)
  Receive Date: 20170614
  Receipt Date: 20170614
  Transmission Date: 20170830
  Serious: No
  Sender: FDA-Public Use
  Company Number: US-ROCHE-792746

PATIENT
  Age: 51 Year
  Sex: Female
  Weight: 51 kg

DRUGS (5)
  1. VITAMIN C [Concomitant]
     Active Substance: ASCORBIC ACID
     Route: 065
  2. VITAMIN A [Concomitant]
     Active Substance: VITAMIN A
     Route: 065
  3. XELODA [Suspect]
     Active Substance: CAPECITABINE
     Indication: BREAST CANCER
     Dosage: 2000 MG QAM , 1500 MG AT NOON AND QPM
     Route: 048
  4. BONDRONAT [Concomitant]
     Active Substance: IBANDRONIC ACID
     Route: 065
  5. VITAMIN B COMPLEX [Concomitant]
     Active Substance: CYANOCOBALAMIN\DEXPANTHENOL\NIACINAMIDE\PYRIDOXINE HYDROCHLORIDE\RIBOFLAVIN 5^-PHOSPHATE SODIUM\THIAMINE HYDROCHLORIDE\VITAMIN B COMPLEX
     Route: 065

REACTIONS (1)
  - Blood blister [Unknown]

NARRATIVE: CASE EVENT DATE: 20110711
